FAERS Safety Report 4757713-1 (Version None)
Quarter: 2005Q3

REPORT INFORMATION
  Report Type: 
  Country: None (occurrence: None)
  Receive Date: 20050829
  Receipt Date: 20050822
  Transmission Date: 20060218
  Serious: Yes (Hospitalization, Other)
  Sender: FDA-Public Use
  Company Number: 2005094600

PATIENT
  Sex: Female
  Weight: 65.7716 kg

DRUGS (6)
  1. DILANTIN [Suspect]
     Indication: EPILEPSY
     Dosage: 330 MG (2 IN 1 D), ORAL
     Route: 048
     Dates: start: 19640501
  2. CELEBREX [Suspect]
     Indication: NECK PAIN
     Dosage: UNK (200 MG), ORAL
     Route: 048
  3. FELDENE [Suspect]
     Indication: ILL-DEFINED DISORDER
     Dosage: UNKNOWN
     Route: 065
  4. PHENOBARBITAL TAB [Suspect]
     Indication: EPILEPSY
     Dosage: 30 MG (30 MG, 1 IN 1 D), UNKNOWN
     Route: 065
     Dates: start: 19640501
  5. VIOXX [Suspect]
     Indication: NECK PAIN
     Dosage: UNKNOWN
     Route: 065
  6. PREMPRO [Suspect]
     Indication: ILL-DEFINED DISORDER
     Dosage: UNKNOWN
     Route: 065

REACTIONS (23)
  - ARTHRALGIA [None]
  - CONVULSION [None]
  - DRUG EXPOSURE DURING PREGNANCY [None]
  - DRUG HYPERSENSITIVITY [None]
  - DYSPEPSIA [None]
  - EXTRAPYRAMIDAL DISORDER [None]
  - FALL [None]
  - FOOD ALLERGY [None]
  - FOOD INTERACTION [None]
  - HEART RATE INCREASED [None]
  - INCOHERENT [None]
  - INCORRECT DOSE ADMINISTERED [None]
  - INTERVERTEBRAL DISC DEGENERATION [None]
  - IODINE ALLERGY [None]
  - MUSCLE TWITCHING [None]
  - NECK INJURY [None]
  - OBSTRUCTIVE AIRWAYS DISORDER [None]
  - PALPITATIONS [None]
  - PHARYNGEAL OEDEMA [None]
  - RASH [None]
  - TREATMENT NONCOMPLIANCE [None]
  - TRIGGER FINGER [None]
  - URTICARIA PRESSURE [None]
